FAERS Safety Report 10891448 (Version 1)
Quarter: 2015Q1

REPORT INFORMATION
  Report Type: Report from Study
  Country: US (occurrence: US)
  Receive Date: 20150306
  Receipt Date: 20150306
  Transmission Date: 20150721
  Serious: No
  Sender: FDA-Public Use
  Company Number: US-GLAXOSMITHKLINE-US2015027947

PATIENT
  Age: 15 Year
  Sex: Female

DRUGS (11)
  1. ZOFRAN [Concomitant]
     Active Substance: ONDANSETRON HYDROCHLORIDE
  2. LASIX [Concomitant]
     Active Substance: FUROSEMIDE
  3. CLARITIN [Concomitant]
     Active Substance: LORATADINE
  4. VITAMINS [Concomitant]
     Active Substance: VITAMINS
  5. AMBRISENTAN TABLET [Suspect]
     Active Substance: AMBRISENTAN
     Indication: PULMONARY HYPERTENSION
     Dosage: 10 MG, QD
     Route: 065
     Dates: start: 20130904
  6. ALDACTONE [Concomitant]
     Active Substance: SPIRONOLACTONE
  7. ADCIRCA [Suspect]
     Active Substance: TADALAFIL
     Indication: PRODUCT USED FOR UNKNOWN INDICATION
     Route: 065
  8. POTASSIUM CHLORIDE. [Concomitant]
     Active Substance: POTASSIUM CHLORIDE
  9. VELETRI [Suspect]
     Active Substance: EPOPROSTENOL
     Indication: PRODUCT USED FOR UNKNOWN INDICATION
     Route: 065
  10. COUMADIN [Concomitant]
     Active Substance: WARFARIN SODIUM
  11. PEPCID [Concomitant]
     Active Substance: FAMOTIDINE

REACTIONS (2)
  - Palpitations [Recovered/Resolved]
  - Off label use [Not Recovered/Not Resolved]

NARRATIVE: CASE EVENT DATE: 20130904
